FAERS Safety Report 7494106-0 (Version None)
Quarter: 2011Q2

REPORT INFORMATION
  Report Type: 
  Country: None (occurrence: None)
  Receive Date: 20110520
  Receipt Date: 20110506
  Transmission Date: 20111010
  Serious: Yes (Life-Threatening)
  Sender: FDA-Public Use
  Company Number: RO-JNJFOC-20110503666

PATIENT
  Sex: Male

DRUGS (3)
  1. ACETAMINOPHEN/PHENYLEPHRINE HCI [Concomitant]
     Indication: PREMEDICATION
     Route: 048
  2. REMICADE [Suspect]
     Indication: ANKYLOSING SPONDYLITIS
     Route: 042
     Dates: start: 20110429, end: 20110429
  3. REMICADE [Suspect]
     Route: 042
     Dates: start: 20100101

REACTIONS (3)
  - CYANOSIS [None]
  - CHILLS [None]
  - CHEST DISCOMFORT [None]
